FAERS Safety Report 11192918 (Version 3)
Quarter: 2015Q4

REPORT INFORMATION
  Report Type: Spontaneous
  Country: US (occurrence: US)
  Receive Date: 20150616
  Receipt Date: 20151002
  Transmission Date: 20160304
  Serious: No
  Sender: FDA-Public Use
  Company Number: US-009507513-1506USA006696

PATIENT
  Age: 45 Year
  Sex: Female
  Weight: 77.98 kg

DRUGS (3)
  1. RAGWITEK [Suspect]
     Active Substance: AMBROSIA ARTEMISIIFOLIA POLLEN
     Dosage: 12 AMB A 1U, 1 TABLET
     Route: 060
     Dates: start: 20150602, end: 20150602
  2. RAGWITEK [Suspect]
     Active Substance: AMBROSIA ARTEMISIIFOLIA POLLEN
     Dosage: 12 AMB A 1U, 1 TABLET
     Route: 060
     Dates: start: 20150602, end: 20150602
  3. RAGWITEK [Suspect]
     Active Substance: AMBROSIA ARTEMISIIFOLIA POLLEN
     Indication: SEASONAL ALLERGY
     Dosage: STRENGTH: 12 AMB A 1UNIT; DOSE: 12 AMB/ ONE TIME
     Route: 060

REACTIONS (3)
  - Lip oedema [Recovered/Resolved]
  - Lip swelling [Recovering/Resolving]
  - Swelling [Unknown]

NARRATIVE: CASE EVENT DATE: 20150602
